FAERS Safety Report 16777137 (Version 1)
Quarter: 2019Q3

REPORT INFORMATION
  Report Type: Spontaneous
  Country: US (occurrence: US)
  Receive Date: 20190716
  Receipt Date: 20190716
  Transmission Date: 20191005
  Serious: Yes (Hospitalization)
  Sender: FDA-Public Use
  Company Number: None

PATIENT
  Age: 12 Year
  Sex: Female

DRUGS (6)
  1. MEKINIST [Suspect]
     Active Substance: TRAMETINIB DIMETHYL SULFOXIDE
     Indication: BRAIN NEOPLASM MALIGNANT
     Route: 048
     Dates: start: 20190618
  2. LORAZEPAM. [Concomitant]
     Active Substance: LORAZEPAM
  3. KEOTONCONAZOLE [Concomitant]
  4. HYDROCORTI [Concomitant]
  5. CLOBETASOL [Concomitant]
     Active Substance: CLOBETASOL
  6. OLANZAPINE DEXAMETHASON [Concomitant]

REACTIONS (4)
  - Therapy cessation [None]
  - Pruritus [None]
  - Dehydration [None]
  - Fatigue [None]

NARRATIVE: CASE EVENT DATE: 20190704
